FAERS Safety Report 4404323-1 (Version None)
Quarter: 2004Q3

REPORT INFORMATION
  Report Type: 
  Country: None (occurrence: None)
  Receive Date: 20040720
  Receipt Date: 20040708
  Transmission Date: 20050211
  Serious: No
  Sender: FDA-Public Use
  Company Number: 236020

PATIENT
  Age: 55 Year
  Sex: Female
  Weight: 52 kg

DRUGS (5)
  1. NOVOMIX 30 FLEXPEN (INSULIN ASPART) SUSPENSION FOR INJECTION, 100U/ML [Suspect]
     Indication: DIABETES MELLITUS INSULIN-DEPENDENT
     Dosage: 32 IU, SINGLE
     Dates: start: 20040227, end: 20040227
  2. OROCAL (CALCIUM CARBONATE) [Concomitant]
  3. PRAVASTATIN SODIUM [Concomitant]
  4. UTROGESTAN [Concomitant]
  5. FEMME SEPT 50 [Concomitant]

REACTIONS (6)
  - BLOOD GLUCOSE DECREASED [None]
  - GLYCOSYLATED HAEMOGLOBIN INCREASED [None]
  - LOSS OF CONSCIOUSNESS [None]
  - NAUSEA [None]
  - VERTIGO [None]
  - VOMITING [None]
